FAERS Safety Report 5581451-9 (Version None)
Quarter: 2007Q4

REPORT INFORMATION
  Report Type: 
  Country: None (occurrence: None)
  Receive Date: 20071231
  Receipt Date: 20071231
  Transmission Date: 20080405
  Serious: No
  Sender: FDA-Public Use
  Company Number: None

PATIENT
  Sex: Male
  Weight: 63.5036 kg

DRUGS (1)
  1. CHANTIX [Suspect]
     Indication: SMOKING CESSATION THERAPY
     Dosage: .5MG  2/DAY PO;  1.0MG  2/DAY PO
     Route: 048
     Dates: start: 20071110, end: 20071117

REACTIONS (7)
  - ABNORMAL BEHAVIOUR [None]
  - ABNORMAL DREAMS [None]
  - DEPRESSION [None]
  - FEAR [None]
  - INSOMNIA [None]
  - POOR QUALITY SLEEP [None]
  - SUICIDAL IDEATION [None]
